FAERS Safety Report 10013415 (Version 1)
Quarter: 2014Q1

REPORT INFORMATION
  Report Type: Spontaneous
  Country: US (occurrence: US)
  Receive Date: 20140314
  Receipt Date: 20140314
  Transmission Date: 20141002
  Serious: No
  Sender: FDA-Public Use
  Company Number: US-PFIZER INC-2014073727

PATIENT
  Sex: Female

DRUGS (3)
  1. CHANTIX [Suspect]
     Dosage: UNK
     Dates: start: 2012
  2. ZOLOFT [Suspect]
     Dosage: UNK
  3. LITHIUM [Suspect]
     Dosage: UNK

REACTIONS (1)
  - Nausea [Unknown]
